FAERS Safety Report 6547617-6 (Version None)
Quarter: 2010Q1

REPORT INFORMATION
  Report Type: 
  Country: None (occurrence: None)
  Receive Date: 20100122
  Receipt Date: 20100113
  Transmission Date: 20100710
  Serious: Yes (Other)
  Sender: FDA-Public Use
  Company Number: GB-GENENTECH-289146

PATIENT
  Age: 13 Year
  Sex: Male

DRUGS (12)
  1. RITUXIMAB [Suspect]
     Indication: CHEMOTHERAPY
     Route: 065
  2. CYCLOPHOSPHAMIDE [Suspect]
     Indication: CHEMOTHERAPY
     Route: 065
  3. CYTARABINE [Suspect]
     Indication: CHEMOTHERAPY
     Route: 065
  4. DEXRAZOXANE [Suspect]
     Indication: CHEMOTHERAPY
     Route: 065
  5. DOXORUBICIN HCL [Suspect]
     Indication: CHEMOTHERAPY
     Route: 065
  6. PREDNISOLONE [Suspect]
     Indication: CHEMOTHERAPY
     Route: 065
  7. TACROLIMUS [Suspect]
     Indication: CHEMOTHERAPY
     Route: 065
  8. TACROLIMUS [Suspect]
     Route: 065
  9. THIOGUANINE [Suspect]
     Indication: CHEMOTHERAPY
     Route: 065
  10. THIOGUANINE [Suspect]
     Route: 065
  11. VINCRISTINE [Suspect]
     Indication: CHEMOTHERAPY
     Route: 065
  12. METHOTREXATE [Suspect]
     Indication: DRUG USE FOR UNKNOWN INDICATION
     Route: 037

REACTIONS (6)
  - EPSTEIN-BARR VIRAEMIA [None]
  - LYMPHOPROLIFERATIVE DISORDER [None]
  - PNEUMONITIS [None]
  - RENAL FAILURE [None]
  - SEPSIS [None]
  - STAPHYLOCOCCAL BACTERAEMIA [None]
